FAERS Safety Report 24062970 (Version 3)
Quarter: 2024Q3

REPORT INFORMATION
  Report Type: Report from Study
  Country: FR (occurrence: FR)
  Receive Date: 20240709
  Receipt Date: 20240712
  Transmission Date: 20241017
  Serious: Yes (Death, Other)
  Sender: GLAXOSMITHKLINE
  Company Number: FR-GLAXOSMITHKLINE-FR2024GSK084140

PATIENT

DRUGS (1)
  1. DOSTARLIMAB [Suspect]
     Active Substance: DOSTARLIMAB
     Indication: Endometrial cancer
     Dosage: 500 MG
     Route: 042
     Dates: start: 20240229, end: 20240507

REACTIONS (3)
  - Infectious pleural effusion [Fatal]
  - Malignant neoplasm progression [Unknown]
  - Drug ineffective [Unknown]
